FAERS Safety Report 6618660-3 (Version None)
Quarter: 2010Q1

REPORT INFORMATION
  Report Type: 
  Country: None (occurrence: None)
  Receive Date: 20100305
  Receipt Date: 20100305
  Transmission Date: 20100710
  Serious: Yes (Other)
  Sender: FDA-Public Use
  Company Number: None

PATIENT
  Age: 84 Year
  Sex: Female
  Weight: 86.1834 kg

DRUGS (1)
  1. LEVAQUIN [Suspect]
     Indication: PULMONARY CONGESTION
     Dosage: ONLY TOOK 1 PILL 1 PER DAY 500 MG
     Dates: start: 20091222

REACTIONS (3)
  - BLISTER [None]
  - DRUG HYPERSENSITIVITY [None]
  - SCAB [None]
